FAERS Safety Report 4821335-4 (Version None)
Quarter: 2005Q4

REPORT INFORMATION
  Report Type: 
  Country: None (occurrence: None)
  Receive Date: 20051104
  Receipt Date: 20051104
  Transmission Date: 20060501
  Serious: No
  Sender: FDA-Public Use
  Company Number: None

PATIENT
  Age: 36 Week

DRUGS (2)
  1. AMPICILLIN [Suspect]
     Dosage: INJECTABLE
  2. TPN [Suspect]
     Dosage: LIQUID

REACTIONS (2)
  - INCORRECT ROUTE OF DRUG ADMINISTRATION [None]
  - MEDICATION ERROR [None]
